FAERS Safety Report 9718706 (Version 2)
Quarter: 2013Q4

REPORT INFORMATION
  Report Type: Not Available
  Country: US (occurrence: US)
  Receive Date: 20131125
  Receipt Date: 20131125
  Transmission Date: 20140711
  Serious: Yes (Other)
  Sender: FDA-Public Use
  Company Number: US-H. LUNDBECK A/S-DKLU1092627

PATIENT
  Sex: Male

DRUGS (3)
  1. ONFI [Suspect]
     Indication: LENNOX-GASTAUT SYNDROME
     Dates: start: 20130425
  2. ONFI [Suspect]
     Indication: CONVULSION
  3. DIAZEPAM [Concomitant]
     Indication: PRODUCT USED FOR UNKNOWN INDICATION

REACTIONS (2)
  - White blood cell count decreased [Unknown]
  - Platelet count decreased [Unknown]
